FAERS Safety Report 15072754 (Version 1)
Quarter: 2018Q2

REPORT INFORMATION
  Report Type: Other
  Country: DE (occurrence: DE)
  Receive Date: 20180627
  Receipt Date: 20180627
  Transmission Date: 20180711
  Serious: No
  Sender: FDA-Public Use
  Company Number: DE-LUPIN PHARMACEUTICALS INC.-2017-04360

PATIENT
  Age: 52 Year
  Sex: Male
  Weight: 89 kg

DRUGS (1)
  1. SIMVASTATIN TABLETS [Suspect]
     Active Substance: SIMVASTATIN
     Indication: HYPERCHOLESTEROLAEMIA
     Dosage: 20 MG, QD (ONE TABLET FOR THE NIGHT)
     Route: 048
     Dates: start: 201701, end: 201707

REACTIONS (1)
  - Nightmare [Recovered/Resolved]

NARRATIVE: CASE EVENT DATE: 20170116
